FAERS Safety Report 4874390-X (Version None)
Quarter: 2006Q1

REPORT INFORMATION
  Report Type: 
  Country: None (occurrence: None)
  Receive Date: 20060104
  Receipt Date: 20060104
  Transmission Date: 20060701
  Serious: Yes (Other)
  Sender: FDA-Public Use
  Company Number: None

PATIENT
  Sex: Male

DRUGS (3)
  1. FLUTICASONE PROPIONATE [Suspect]
     Indication: ASTHMA
     Dosage: 2 P TWICE DAILY
  2. FLUTICASONE PROPIONATE [Suspect]
     Indication: CROUP INFECTIOUS
     Dosage: 2 P TWICE DAILY
  3. ALBUTEROL [Concomitant]

REACTIONS (2)
  - ABNORMAL BEHAVIOUR [None]
  - DISTURBANCE IN ATTENTION [None]
